FAERS Safety Report 7995575-X (Version None)
Quarter: 2011Q4

REPORT INFORMATION
  Report Type: 
  Country: None (occurrence: None)
  Receive Date: 20111220
  Receipt Date: 20111213
  Transmission Date: 20120403
  Serious: Yes (Death)
  Sender: FDA-Public Use
  Company Number: FR-MERCK-1111USA00940

PATIENT
  Age: 24 Year
  Sex: Female

DRUGS (12)
  1. AMIKACIN [Suspect]
     Indication: FEBRILE CONVULSION
     Route: 042
     Dates: start: 20110909, end: 20110101
  2. PIPERACILLIN AND TAZOBACTAM [Concomitant]
     Route: 042
     Dates: start: 20110101, end: 20111002
  3. CANCIDAS [Concomitant]
     Indication: CANDIDIASIS
     Route: 042
     Dates: start: 20110829, end: 20110906
  4. FOSCAVIR [Suspect]
     Indication: CYTOMEGALOVIRUS INFECTION
     Route: 042
     Dates: start: 20110903, end: 20110909
  5. VANCOMYCIN HCL [Suspect]
     Indication: FEBRILE CONVULSION
     Route: 042
     Dates: start: 20110909
  6. PRIMAXIN [Suspect]
     Indication: FEBRILE CONVULSION
     Route: 042
     Dates: start: 20110909, end: 20110918
  7. PRIMAXIN [Suspect]
     Route: 042
     Dates: start: 20111002
  8. IMURAN [Concomitant]
     Indication: CROHN'S DISEASE
     Route: 048
     Dates: start: 20110201, end: 20110825
  9. CANCIDAS [Concomitant]
     Route: 042
     Dates: start: 20110920
  10. PIPERACILLIN AND TAZOBACTAM [Concomitant]
     Indication: FEBRILE CONVULSION
     Route: 042
     Dates: start: 20110825, end: 20110904
  11. GANCICLOVIR SODIUM [Suspect]
     Indication: CYTOMEGALOVIRUS INFECTION
     Route: 042
     Dates: start: 20110830, end: 20110916
  12. FOSCAVIR [Suspect]
     Route: 042
     Dates: start: 20110930

REACTIONS (1)
  - PANCYTOPENIA [None]
